FAERS Safety Report 17632750 (Version 2)
Quarter: 2020Q2

REPORT INFORMATION
  Report Type: Spontaneous
  Country: BR (occurrence: BR)
  Receive Date: 20200406
  Receipt Date: 20200429
  Transmission Date: 20200713
  Serious: Yes (Other)
  Sender: FDA-Public Use
  Company Number: BR-SHIRE-BR202012298

PATIENT

DRUGS (3)
  1. DIOSMIN [Concomitant]
     Active Substance: DIOSMIN
     Indication: HISTAMINE LEVEL
  2. ALPRAZOLAM. [Concomitant]
     Active Substance: ALPRAZOLAM
     Indication: ANXIETY
  3. VENVANSE [Suspect]
     Active Substance: LISDEXAMFETAMINE DIMESYLATE
     Indication: PRODUCT USED FOR UNKNOWN INDICATION
     Dosage: 30 MILLIGRAM, GEL CAPSULE X 28
     Route: 048
     Dates: start: 2013

REACTIONS (6)
  - Product availability issue [Unknown]
  - Mental impairment [Unknown]
  - Product administration interrupted [Unknown]
  - Drug dependence [Unknown]
  - Inappropriate schedule of product administration [Unknown]
  - Feeling abnormal [Unknown]
